FAERS Safety Report 8230550-1 (Version None)
Quarter: 2012Q1

REPORT INFORMATION
  Report Type: 
  Country: None (occurrence: None)
  Receive Date: 20120323
  Receipt Date: 20120313
  Transmission Date: 20120608
  Serious: Yes (Other)
  Sender: FDA-Public Use
  Company Number: AU-JNJFOC-20120307134

PATIENT
  Sex: Female

DRUGS (2)
  1. STELARA [Suspect]
     Indication: PSORIASIS
     Route: 058
     Dates: start: 20120310
  2. MICARDIS [Concomitant]
     Indication: HYPERTENSION
     Dosage: 80/12.5 MG DAILY

REACTIONS (1)
  - POSTMENOPAUSAL HAEMORRHAGE [None]
